FAERS Safety Report 9929955 (Version 2)
Quarter: 2017Q2

REPORT INFORMATION
  Report Type: Spontaneous
  Country: US (occurrence: US)
  Receive Date: 20140227
  Receipt Date: 20170411
  Transmission Date: 20170830
  Serious: Yes (Other)
  Sender: FDA-Public Use
  Company Number: PHHY2014US022507

PATIENT
  Sex: Female

DRUGS (16)
  1. CITALOPRAM [Suspect]
     Active Substance: CITALOPRAM HYDROBROMIDE
     Dosage: FETAL DRUG EXPOSURE VIA FATHER
     Route: 065
  2. ZOLPIDEM [Suspect]
     Active Substance: ZOLPIDEM\ZOLPIDEM TARTRATE
     Dosage: FETAL DRUG EXPOSURE VIA FATHER
     Route: 065
  3. QUETIAPINE. [Suspect]
     Active Substance: QUETIAPINE
     Dosage: FETAL DRUG EXPOSURE VIA FATHER
     Route: 065
  4. PRAZOSIN. [Suspect]
     Active Substance: PRAZOSIN
     Dosage: FETAL DRUG EXPOSURE VIA FATHER
     Route: 065
  5. SERTRALINE [Suspect]
     Active Substance: SERTRALINE HYDROCHLORIDE
     Dosage: FETAL DRUG EXPOSURE VIA FATHER
     Route: 065
  6. BUPROPION. [Suspect]
     Active Substance: BUPROPION
     Dosage: FETAL DRUG EXPOSURE VIA FATHER
     Route: 065
  7. VENLAFAXINE [Suspect]
     Active Substance: VENLAFAXINE HYDROCHLORIDE
     Dosage: FETAL DRUG EXPOSURE VIA FATHER
     Route: 065
  8. FLUOXETINE [Suspect]
     Active Substance: FLUOXETINE HYDROCHLORIDE
     Dosage: FETAL DRUG EXPOSURE VIA FATHER
     Route: 065
  9. ESCITALOPRAM [Suspect]
     Active Substance: ESCITALOPRAM OXALATE
     Dosage: FETAL DRUG EXPOSURE VIA FATHER
     Route: 065
  10. OLANZAPINE. [Suspect]
     Active Substance: OLANZAPINE
     Dosage: FETAL DRUG EXPOSURE VIA FATHER
     Route: 065
  11. AMITRIPTYLINE [Suspect]
     Active Substance: AMITRIPTYLINE
     Dosage: FETAL DRUG EXPOSURE VIA FATHER
     Route: 065
  12. VALPROIC ACID. [Suspect]
     Active Substance: VALPROIC ACID
     Dosage: FETAL DRUG EXPOSURE VIA FATHER
     Route: 065
  13. TRAZODONE [Suspect]
     Active Substance: TRAZODONE HYDROCHLORIDE
     Dosage: FETAL DRUG EXPOSURE VIA FATHER
     Route: 065
  14. RISPERIDONE. [Suspect]
     Active Substance: RISPERIDONE
     Dosage: FETAL DRUG EXPOSURE VIA FATHER
     Route: 065
  15. DIPHENHYDRAMINE. [Suspect]
     Active Substance: DIPHENHYDRAMINE
     Dosage: FETAL DRUG EXPOSURE VIA FATHER
     Route: 065
  16. ESZOPICLONE. [Suspect]
     Active Substance: ESZOPICLONE
     Dosage: FETAL DRUG EXPOSURE VIA FATHER
     Route: 065

REACTIONS (4)
  - Frustration tolerance decreased [Unknown]
  - Exposure via father [Unknown]
  - Psychiatric symptom [Unknown]
  - Fatigue [Unknown]
